FAERS Safety Report 24191910 (Version 1)
Quarter: 2024Q3

REPORT INFORMATION
  Report Type: Spontaneous
  Country: US (occurrence: US)
  Receive Date: 20240809
  Receipt Date: 20240809
  Transmission Date: 20241016
  Serious: Yes (Hospitalization)
  Sender: NOVO NORDISK
  Company Number: US-NOVOPROD-1263565

PATIENT
  Age: 75 Year
  Sex: Female

DRUGS (2)
  1. OZEMPIC [Suspect]
     Active Substance: SEMAGLUTIDE
     Indication: Product used for unknown indication
     Dosage: UNK
     Route: 058
  2. NovoFine Plus (32G) [Concomitant]
     Indication: Device therapy
     Dosage: UNK

REACTIONS (3)
  - Blood pressure decreased [Unknown]
  - Dehydration [Unknown]
  - Syncope [Unknown]
